FAERS Safety Report 15948601 (Version 1)
Quarter: 2019Q1

REPORT INFORMATION
  Report Type: Spontaneous
  Country: FR (occurrence: FR)
  Receive Date: 20190212
  Receipt Date: 20190212
  Transmission Date: 20190417
  Serious: Yes (Hospitalization)
  Sender: FDA-Public Use
  Company Number: FR-ACCORD-106898

PATIENT
  Age: 77 Year
  Sex: Male

DRUGS (7)
  1. QUINAPRIL. [Interacting]
     Active Substance: QUINAPRIL
     Indication: HYPERTENSION
     Route: 048
     Dates: end: 20120627
  2. DIAMICRON [Concomitant]
     Active Substance: GLICLAZIDE
     Indication: DIABETES MELLITUS
     Route: 048
     Dates: end: 20120627
  3. FUROSEMIDE. [Suspect]
     Active Substance: FUROSEMIDE
     Indication: HYPERTENSION
     Route: 048
  4. EUPRESSYL [Concomitant]
     Active Substance: URAPIDIL
     Indication: HYPERTENSION
     Route: 048
     Dates: end: 20120627
  5. NAFTIDROFURYL [Concomitant]
     Active Substance: NAFRONYL
     Indication: THROMBOANGIITIS OBLITERANS
     Route: 048
     Dates: end: 20120703
  6. CEBUTID [Interacting]
     Active Substance: FLURBIPROFEN
     Indication: RHEUMATIC DISORDER
     Route: 048
     Dates: end: 20120627
  7. ZYLORIC [Concomitant]
     Active Substance: ALLOPURINOL
     Indication: HYPERURICAEMIA
     Route: 048
     Dates: end: 20120627

REACTIONS (2)
  - Renal failure [Recovering/Resolving]
  - Drug interaction [Unknown]

NARRATIVE: CASE EVENT DATE: 20120626
